FAERS Safety Report 11107491 (Version 3)
Quarter: 2015Q3

REPORT INFORMATION
  Report Type: Report from Study
  Country: US (occurrence: US)
  Receive Date: 20150512
  Receipt Date: 20150714
  Transmission Date: 20151125
  Serious: Yes (Hospitalization)
  Sender: FDA-Public Use
  Company Number: US-INCYTE CORPORATION-2015IN001981

PATIENT
  Age: 68 Year
  Sex: Male
  Weight: 119.91 kg

DRUGS (12)
  1. MOTRIN [Concomitant]
     Active Substance: IBUPROFEN
     Dosage: 1-2 TABLETS TID
     Route: 048
     Dates: start: 20100510
  2. GLUCOPHAGE [Concomitant]
     Active Substance: METFORMIN HYDROCHLORIDE
     Indication: DIABETES MELLITUS
     Dosage: 500 MG, QID
     Route: 048
     Dates: start: 20100803
  3. CINNAMON                           /01647501/ [Concomitant]
     Active Substance: CINNAMON
     Dosage: 1 TABLET QID
     Route: 048
  4. INCB018424 (RUXOLITINIB) [Suspect]
     Active Substance: RUXOLITINIB
     Indication: MYELOFIBROSIS
     Dosage: 20 MG, BID
     Route: 048
     Dates: start: 20100412
  5. LOPID [Concomitant]
     Active Substance: GEMFIBROZIL
     Indication: BLOOD TRIGLYCERIDES INCREASED
     Dosage: 600 MG, BID
     Route: 048
     Dates: start: 20100309
  6. NORCO [Concomitant]
     Active Substance: ACETAMINOPHEN\HYDROCODONE BITARTRATE
     Indication: PAIN
     Dosage: 1-2 TABLETS EVERY 4-6 HOURS AS NEEDED
     Route: 048
     Dates: start: 20140509
  7. THERAGRAN                          /07504101/ [Concomitant]
     Dosage: 1 TABLET QD
     Route: 048
     Dates: start: 20100309
  8. GLUCOTROL [Concomitant]
     Active Substance: GLIPIZIDE
     Indication: DIABETES MELLITUS
     Dosage: 5 MG , 1 TABLET EVERY MORNING
     Route: 048
     Dates: start: 20100702
  9. ZYLOPRIM [Concomitant]
     Active Substance: ALLOPURINOL
     Indication: GOUT
     Dosage: 1 TABLET QD
     Route: 048
     Dates: start: 20100928
  10. OMEGA 3 6 9                        /06597401/ [Concomitant]
     Dosage: 4 TABLETS DAILY
     Route: 048
     Dates: start: 20101220
  11. MIRAPEX [Concomitant]
     Active Substance: PRAMIPEXOLE DIHYDROCHLORIDE
     Indication: RESTLESS LEGS SYNDROME
     Dosage: 0.125 MG AT BEDTIME AS NEEDED
     Route: 048
     Dates: start: 20140219
  12. LEVITRA [Concomitant]
     Active Substance: VARDENAFIL HYDROCHLORIDE TRIHYDRATE
     Indication: ERECTILE DYSFUNCTION
     Dosage: 1 TABLET AS NEEDED
     Route: 048
     Dates: start: 20100309

REACTIONS (1)
  - Periorbital cellulitis [Recovering/Resolving]

NARRATIVE: CASE EVENT DATE: 20150503
